FAERS Safety Report 21699973 (Version 3)
Quarter: 2023Q1

REPORT INFORMATION
  Report Type: Spontaneous
  Country: CA (occurrence: CA)
  Receive Date: 20221208
  Receipt Date: 20230322
  Transmission Date: 20230418
  Serious: Yes (Other)
  Sender: FDA-Public Use
  Company Number: CA-PFIZER-INC-202200274371

PATIENT
  Age: 32 Year
  Sex: Female

DRUGS (7)
  1. RUXIENCE [Suspect]
     Active Substance: RITUXIMAB-PVVR
     Indication: Granulomatosis with polyangiitis
     Dosage: 500 MG, 1 DOSE, REPEAT EVERY 12 MONTHS
     Route: 042
     Dates: start: 20220531
  2. RUXIENCE [Suspect]
     Active Substance: RITUXIMAB-PVVR
     Indication: Idiopathic orbital inflammation
     Dosage: 500 MG, 1 DOSE, REPEAT EVERY 12 MONTHS
     Route: 042
     Dates: start: 20220531, end: 20220531
  3. RUXIENCE [Suspect]
     Active Substance: RITUXIMAB-PVVR
     Dosage: 500 MG, 1 DOSE, REPEAT EVERY 12 MONTHS
     Route: 042
  4. RUXIENCE [Suspect]
     Active Substance: RITUXIMAB-PVVR
     Dosage: 500 MG, 1 DOSE, REPEAT EVERY 12 MONTHS
     Route: 042
     Dates: start: 20221128
  5. RUXIENCE [Suspect]
     Active Substance: RITUXIMAB-PVVR
     Dosage: 500 MG, 1 DOSE, REPEAT EVERY 12 MONTHS
     Route: 042
     Dates: start: 20221128
  6. RUXIENCE [Suspect]
     Active Substance: RITUXIMAB-PVVR
     Dosage: 500 MG, FREQUENCY NOT PROVIDED
     Route: 042
     Dates: start: 20221128
  7. ALENDRONATE [Concomitant]
     Active Substance: ALENDRONATE SODIUM
     Dosage: UNK

REACTIONS (4)
  - Hip fracture [Unknown]
  - Bone disorder [Unknown]
  - Heart rate abnormal [Not Recovered/Not Resolved]
  - Off label use [Unknown]

NARRATIVE: CASE EVENT DATE: 20220801
